FAERS Safety Report 10597908 (Version 3)
Quarter: 2015Q1

REPORT INFORMATION
  Report Type: Spontaneous
  Country: CA (occurrence: CA)
  Receive Date: 20141121
  Receipt Date: 20150128
  Transmission Date: 20150720
  Serious: Yes (Other)
  Sender: FDA-Public Use
  Company Number: CA-BEH-2014046490

PATIENT
  Sex: Female
  Weight: 90 kg

DRUGS (1)
  1. BERINERT [Suspect]
     Active Substance: HUMAN C1-ESTERASE INHIBITOR
     Indication: HEREDITARY ANGIOEDEMA
     Dosage: SELF INFUSES EVERY 12 HOURS AS NEEDED

REACTIONS (4)
  - Drug ineffective for unapproved indication [Unknown]
  - Vein disorder [Unknown]
  - Overdose [Unknown]
  - Thrombosis in device [Unknown]
